FAERS Safety Report 4746222-1 (Version None)
Quarter: 2005Q3

REPORT INFORMATION
  Report Type: 
  Country: None (occurrence: None)
  Receive Date: 20050816
  Receipt Date: 20050707
  Transmission Date: 20060218
  Serious: Yes (Life-Threatening)
  Sender: FDA-Public Use
  Company Number: US-MERCK-0507USA00999

PATIENT
  Age: 35 Year
  Sex: Male

DRUGS (1)
  1. COSOPT [Suspect]
     Indication: DEVELOPMENTAL GLAUCOMA
     Route: 061

REACTIONS (2)
  - HYPERTENSION [None]
  - TACHYCARDIA [None]
